FAERS Safety Report 6146754-8 (Version None)
Quarter: 2009Q2

REPORT INFORMATION
  Report Type: 
  Country: None (occurrence: None)
  Receive Date: 20090407
  Receipt Date: 20090402
  Transmission Date: 20091009
  Serious: Yes (Disabling)
  Sender: FDA-Public Use
  Company Number: FR-JNJFOC-20090205993

PATIENT
  Sex: Female
  Weight: 60 kg

DRUGS (2)
  1. RISPERDAL [Suspect]
     Indication: DELUSIONAL DISORDER, PERSECUTORY TYPE
     Route: 048
  2. XANAX [Concomitant]
     Indication: ANXIETY
     Route: 048

REACTIONS (1)
  - HEADACHE [None]
